FAERS Safety Report 12503641 (Version 2)
Quarter: 2016Q2

REPORT INFORMATION
  Report Type: Spontaneous
  Country: IT (occurrence: IT)
  Receive Date: 20160628
  Receipt Date: 20160630
  Transmission Date: 20160815
  Serious: Yes (Hospitalization)
  Sender: FDA-Public Use
  Company Number: IT-TEVA-670368ACC

PATIENT
  Age: 52 Year
  Sex: Male

DRUGS (2)
  1. RIBAVIRIN. [Suspect]
     Active Substance: RIBAVIRIN
     Indication: HEPATITIS C ANTIBODY POSITIVE
     Route: 048
  2. HARVONI [Suspect]
     Active Substance: LEDIPASVIR\SOFOSBUVIR
     Indication: HEPATITIS C
     Dosage: 490 MILLIGRAM DAILY;
     Route: 048
     Dates: start: 20160406

REACTIONS (1)
  - Pneumonitis [Unknown]

NARRATIVE: CASE EVENT DATE: 20160609
